FAERS Safety Report 25489821 (Version 1)
Quarter: 2025Q2

REPORT INFORMATION
  Report Type: Spontaneous
  Country: CA (occurrence: CA)
  Receive Date: 20250627
  Receipt Date: 20250627
  Transmission Date: 20250717
  Serious: Yes (Life-Threatening, Other)
  Sender: BRACCO
  Company Number: CA-BRACCO-2025CA04186

PATIENT
  Age: 60 Year
  Sex: Female

DRUGS (13)
  1. MULTIHANCE [Suspect]
     Active Substance: GADOBENATE DIMEGLUMINE
     Indication: Magnetic resonance imaging
     Route: 042
  2. BACLOFEN [Concomitant]
     Active Substance: BACLOFEN
  3. DEXILANT [Concomitant]
     Active Substance: DEXLANSOPRAZOLE
  4. ESCITALOPRAM [Concomitant]
     Active Substance: ESCITALOPRAM OXALATE
  5. FUROSEMIDE [Concomitant]
     Active Substance: FUROSEMIDE
  6. GABAPENTIN [Concomitant]
     Active Substance: GABAPENTIN
  7. HYDROXYZINE [Concomitant]
     Active Substance: HYDROXYZINE HYDROCHLORIDE
  8. LAMOTRIGINE [Concomitant]
     Active Substance: LAMOTRIGINE
  9. LEVOTHYROXINE SODIUM [Concomitant]
     Active Substance: LEVOTHYROXINE SODIUM
  10. MOMETASONE FUROATE [Concomitant]
     Active Substance: MOMETASONE FUROATE
  11. OXYCODONE [Concomitant]
     Active Substance: OXYCODONE
  12. ALBUTEROL [Concomitant]
     Active Substance: ALBUTEROL
  13. TRAZODONE [Concomitant]
     Active Substance: TRAZODONE HYDROCHLORIDE

REACTIONS (2)
  - Anaphylactic reaction [Recovering/Resolving]
  - Hypotension [Recovering/Resolving]
